FAERS Safety Report 25842180 (Version 2)
Quarter: 2025Q3

REPORT INFORMATION
  Report Type: Spontaneous
  Country: US (occurrence: US)
  Receive Date: 20250924
  Receipt Date: 20250926
  Transmission Date: 20251020
  Serious: No
  Sender: ELI LILLY AND COMPANY
  Company Number: US-ELI_LILLY_AND_COMPANY-US202509021303

PATIENT
  Age: 39 Year
  Sex: Female

DRUGS (2)
  1. HUMULIN N [Suspect]
     Active Substance: INSULIN HUMAN
     Indication: Gestational diabetes
     Dosage: 78 U, DAILY
     Route: 058
     Dates: start: 202503
  2. HUMULIN N [Suspect]
     Active Substance: INSULIN HUMAN
     Dosage: 78 U, DAILY
     Route: 058

REACTIONS (2)
  - Maternal exposure during pregnancy [Unknown]
  - Insulin resistance [Unknown]
